FAERS Safety Report 14827089 (Version 1)
Quarter: 2018Q2

REPORT INFORMATION
  Report Type: Spontaneous
  Country: US (occurrence: US)
  Receive Date: 20180430
  Receipt Date: 20180430
  Transmission Date: 20180711
  Serious: No
  Sender: FDA-Public Use
  Company Number: US-ABBVIE-18P-163-2281728-00

PATIENT
  Age: 30 Year
  Sex: Male
  Weight: 104.42 kg

DRUGS (1)
  1. CREON [Suspect]
     Active Substance: PANCRELIPASE AMYLASE\PANCRELIPASE LIPASE\PANCRELIPASE PROTEASE
     Indication: PANCREATIC FAILURE
     Dosage: 108,00 WITH EACH MEAL AND WITH A SNACK
     Route: 048

REACTIONS (2)
  - Pain [Unknown]
  - Pseudocyst [Unknown]
